FAERS Safety Report 9003641 (Version 3)
Quarter: 2013Q1

REPORT INFORMATION
  Report Type: Other
  Country: GB (occurrence: GB)
  Receive Date: 20130108
  Receipt Date: 20130307
  Transmission Date: 20140127
  Serious: Yes (Hospitalization, Disabling)
  Sender: FDA-Public Use
  Company Number: GB-WATSON-2012-23357

PATIENT
  Sex: Female

DRUGS (4)
  1. METRONIDAZOLE (UNKNOWN) [Suspect]
     Indication: SKIN ULCER
     Dosage: 400MG
     Route: 065
     Dates: start: 20121019
  2. METRONIDAZOLE (UNKNOWN) [Suspect]
     Indication: PRODUCT USED FOR UNKNOWN INDICATION
     Dosage: 200MG
     Route: 065
     Dates: start: 20121022
  3. GABAPENTIN [Concomitant]
     Indication: SCIATIC NERVE INJURY
     Dosage: 300 MG, TID
     Route: 065
     Dates: start: 2007
  4. GABAPENTIN [Concomitant]
     Dosage: 300 MG, QID
     Route: 065

REACTIONS (11)
  - Paraesthesia [Not Recovered/Not Resolved]
  - Hypoaesthesia [Not Recovered/Not Resolved]
  - Head discomfort [Not Recovered/Not Resolved]
  - Hypertension [Not Recovered/Not Resolved]
  - Musculoskeletal disorder [Not Recovered/Not Resolved]
  - Hearing impaired [Not Recovered/Not Resolved]
  - Pain in extremity [Not Recovered/Not Resolved]
  - Feeling abnormal [Not Recovered/Not Resolved]
  - Drug ineffective [Not Recovered/Not Resolved]
  - Peripheral coldness [Not Recovered/Not Resolved]
  - Heart rate increased [Not Recovered/Not Resolved]
